FAERS Safety Report 14520611 (Version 1)
Quarter: 2018Q1

REPORT INFORMATION
  Report Type: Spontaneous
  Country: US (occurrence: US)
  Receive Date: 20180212
  Receipt Date: 20180212
  Transmission Date: 20180509
  Serious: No
  Sender: FDA-Public Use
  Company Number: US-AMGEN-USASP2017174506

PATIENT
  Age: 88 Year
  Sex: Male

DRUGS (4)
  1. ZEMPLAR [Concomitant]
     Active Substance: PARICALCITOL
     Indication: BLOOD PARATHYROID HORMONE INCREASED
     Dosage: 6 MUG, 3 TIMES/WK
     Route: 042
     Dates: start: 20171105
  2. FOSRENOL [Concomitant]
     Active Substance: LANTHANUM CARBONATE
     Indication: BLOOD PHOSPHORUS INCREASED
     Dosage: 1000 MG, BID
     Route: 048
     Dates: start: 20170404
  3. VENOFER [Concomitant]
     Active Substance: IRON SUCROSE
     Indication: ANAEMIA
     Dosage: 50 MG, QWK
     Route: 042
     Dates: start: 20170910
  4. PARSABIV [Suspect]
     Active Substance: ETELCALCETIDE HYDROCHLORIDE
     Indication: PRODUCT USED FOR UNKNOWN INDICATION
     Dosage: 5 MG, UNK
     Route: 065
     Dates: start: 20171106, end: 20171117

REACTIONS (2)
  - Palpitations [Recovered/Resolved]
  - Paraesthesia [Recovered/Resolved]

NARRATIVE: CASE EVENT DATE: 20171118
